FAERS Safety Report 6538972-1 (Version None)
Quarter: 2010Q1

REPORT INFORMATION
  Report Type: 
  Country: None (occurrence: None)
  Receive Date: 20100114
  Receipt Date: 20100114
  Transmission Date: 20100710
  Serious: Yes (Congenital Anomaly)
  Sender: FDA-Public Use
  Company Number: None

PATIENT
  Age: 21 Year
  Sex: Male
  Weight: 68.0396 kg

DRUGS (1)
  1. COLD REMEDY NASAL GEL ZICAM COLD NASAL GEL?? ZICAM COLD REMEDY NASAL G [Suspect]

REACTIONS (1)
  - ANOSMIA [None]
